FAERS Safety Report 8817764 (Version 2)
Quarter: 2013Q1

REPORT INFORMATION
  Report Type: Spontaneous
  Country: FR (occurrence: FR)
  Receive Date: 20121001
  Receipt Date: 20130307
  Transmission Date: 20140127
  Serious: Yes (Other)
  Sender: FDA-Public Use
  Company Number: FR-PFIZER INC-2012235642

PATIENT
  Age: 70 Year
  Sex: Female

DRUGS (8)
  1. AROMASINE [Suspect]
     Indication: BREAST CANCER
     Dosage: 25 MG, 1X/DAY
     Route: 048
     Dates: start: 20111110, end: 20120430
  2. ZECLAR [Suspect]
     Indication: ANTIBIOTIC THERAPY
     Dosage: 500 MG, 2X/DAY
     Route: 048
     Dates: start: 20120417, end: 20120425
  3. ACTONEL [Suspect]
     Indication: METASTASES TO BONE
     Dosage: 35 MG, WEEKLY
     Route: 048
     Dates: start: 20111110, end: 20120430
  4. COTAREG [Concomitant]
     Dosage: UNK
  5. OMEPRAZOLE [Concomitant]
     Dosage: UNK
  6. OXYTONIC [Concomitant]
     Dosage: UNK
  7. CACIT D3 [Concomitant]
  8. AMOXICILLIN [Concomitant]
     Indication: ANTIBIOTIC THERAPY
     Dosage: 1 G, 3X/DAY
     Dates: start: 20120410, end: 20120426

REACTIONS (1)
  - Hepatitis [Recovering/Resolving]
